FAERS Safety Report 18377996 (Version 1)
Quarter: 2020Q4

REPORT INFORMATION
  Report Type: Spontaneous
  Country: US (occurrence: US)
  Receive Date: 20201013
  Receipt Date: 20201013
  Transmission Date: 20210114
  Serious: No
  Sender: FDA-Public Use
  Company Number: US-CSPC OUYI PHARMACEUTICAL CO., LTD.-2092712

PATIENT
  Age: 41 Year
  Sex: Female
  Weight: 52.27 kg

DRUGS (1)
  1. TRAMADOL HYDROCHLORIDE. [Suspect]
     Active Substance: TRAMADOL HYDROCHLORIDE
     Indication: PAIN
     Route: 048
     Dates: start: 20200701, end: 20200816

REACTIONS (7)
  - Constipation [Recovered/Resolved]
  - Drug ineffective [None]
  - Nausea [Recovered/Resolved]
  - Reaction to excipient [Recovered/Resolved]
  - Eating disorder [Recovered/Resolved]
  - Flatulence [Recovered/Resolved]
  - Insomnia [Recovered/Resolved]
